FAERS Safety Report 5263113-0 (Version None)
Quarter: 2007Q1

REPORT INFORMATION
  Report Type: 
  Country: None (occurrence: None)
  Receive Date: 20070312
  Receipt Date: 20070302
  Transmission Date: 20070707
  Serious: Yes (Death, Hospitalization)
  Sender: FDA-Public Use
  Company Number: FR-MERCK-0703FRA00002

PATIENT
  Age: 86 Year
  Sex: Female
  Weight: 50 kg

DRUGS (2)
  1. VYTORIN [Suspect]
     Indication: DYSLIPIDAEMIA
     Route: 048
     Dates: start: 20070123, end: 20070126
  2. OXYBUTYNIN CHLORIDE [Concomitant]
     Route: 048

REACTIONS (4)
  - DEATH [None]
  - GLOSSITIS [None]
  - HYPERSENSITIVITY [None]
  - PYREXIA [None]
